FAERS Safety Report 10347653 (Version 3)
Quarter: 2014Q4

REPORT INFORMATION
  Report Type: Report from Study
  Country: AU (occurrence: AU)
  Receive Date: 20140729
  Receipt Date: 20141006
  Transmission Date: 20150528
  Serious: Yes (Hospitalization, Other)
  Sender: FDA-Public Use
  Company Number: AU-ACTELION-A-CH2014-102653

PATIENT
  Age: 82 Year
  Sex: Female

DRUGS (1)
  1. MACITENTAN [Suspect]
     Active Substance: MACITENTAN
     Indication: PULMONARY ARTERIAL HYPERTENSION
     Dosage: 10 MG, QD
     Route: 048
     Dates: start: 20140704, end: 201407

REACTIONS (4)
  - Dyspnoea [Not Recovered/Not Resolved]
  - Oedema peripheral [Recovered/Resolved]
  - Hypoxia [Not Recovered/Not Resolved]
  - Cardiac failure congestive [Recovered/Resolved]
